FAERS Safety Report 23567581 (Version 3)
Quarter: 2024Q2

REPORT INFORMATION
  Report Type: Spontaneous
  Country: US (occurrence: US)
  Receive Date: 20240226
  Receipt Date: 20240412
  Transmission Date: 20240717
  Serious: Yes (Other)
  Sender: FDA-Public Use
  Company Number: US-BAUSCHBL-2024BNL002453

PATIENT
  Age: 79 Year
  Sex: Male

DRUGS (6)
  1. BROMFENAC OPHTHALMIC SOLUTION [Suspect]
     Active Substance: BROMFENAC SODIUM
     Indication: Macular hole
     Route: 047
  2. BROMFENAC OPHTHALMIC SOLUTION [Suspect]
     Active Substance: BROMFENAC SODIUM
     Route: 065
  3. BROMFENAC OPHTHALMIC SOLUTION [Suspect]
     Active Substance: BROMFENAC SODIUM
     Route: 047
  4. DIFLUPREDNATE [Suspect]
     Active Substance: DIFLUPREDNATE
     Indication: Macular hole
     Route: 047
  5. DIFLUPREDNATE [Suspect]
     Active Substance: DIFLUPREDNATE
     Route: 065
  6. DIFLUPREDNATE [Suspect]
     Active Substance: DIFLUPREDNATE
     Route: 047

REACTIONS (3)
  - Visual acuity reduced [Recovering/Resolving]
  - Rebound effect [Recovering/Resolving]
  - Product use in unapproved indication [Unknown]
